FAERS Safety Report 8576437-6 (Version None)
Quarter: 2012Q3

REPORT INFORMATION
  Report Type: 
  Country: None (occurrence: None)
  Receive Date: 20120807
  Receipt Date: 20120724
  Transmission Date: 20120928
  Serious: Yes (Other)
  Sender: FDA-Public Use
  Company Number: BR-ROCHE-1092596

PATIENT
  Sex: Male
  Weight: 93 kg

DRUGS (4)
  1. PEG-INTRON [Suspect]
     Indication: HEPATITIS C
  2. VICTRELIS [Suspect]
     Indication: HEPATITIS C
     Route: 048
     Dates: start: 20120216, end: 20120716
  3. PEGINTERFERON ALFA-2A [Suspect]
     Indication: HEPATITIS C
     Dates: start: 20120716
  4. RIBAVIRIN [Suspect]
     Indication: HEPATITIS C
     Route: 048

REACTIONS (21)
  - SKIN REACTION [None]
  - WEIGHT DECREASED [None]
  - ANAEMIA [None]
  - CUTANEOUS LUPUS ERYTHEMATOSUS [None]
  - DRUG INEFFECTIVE [None]
  - AGGRESSION [None]
  - PAIN [None]
  - INSOMNIA [None]
  - MUSCULAR WEAKNESS [None]
  - DYSGEUSIA [None]
  - WEIGHT INCREASED [None]
  - INFLUENZA [None]
  - VASCULAR RUPTURE [None]
  - ABDOMINAL DISCOMFORT [None]
  - PYREXIA [None]
  - COUGH [None]
  - ALOPECIA [None]
  - ANAL HAEMORRHAGE [None]
  - HALLUCINATION [None]
  - NERVOUSNESS [None]
  - RHINITIS [None]
